FAERS Safety Report 13372765 (Version 2)
Quarter: 2017Q3

REPORT INFORMATION
  Report Type: Spontaneous
  Country: CA (occurrence: CA)
  Receive Date: 20170327
  Receipt Date: 20170906
  Transmission Date: 20171127
  Serious: Yes (Other)
  Sender: FDA-Public Use
  Company Number: CA-CONCORDIA PHARMACEUTICALS INC.-GSH201703-001957

PATIENT
  Age: 69 Year
  Sex: Female

DRUGS (10)
  1. LEFLUNOMIDE. [Suspect]
     Active Substance: LEFLUNOMIDE
     Indication: RHEUMATOID ARTHRITIS
     Route: 065
  2. METHOTREXATE. [Concomitant]
     Active Substance: METHOTREXATE
  3. HYDROMORPHONE [Concomitant]
     Active Substance: HYDROMORPHONE
  4. ENBREL [Suspect]
     Active Substance: ETANERCEPT
     Indication: RHEUMATOID ARTHRITIS
     Route: 065
  5. ORENCIA [Suspect]
     Active Substance: ABATACEPT
     Indication: RHEUMATOID ARTHRITIS
     Route: 065
  6. PREDNISONE. [Concomitant]
     Active Substance: PREDNISONE
  7. METHOTREXATE SODIUM. [Suspect]
     Active Substance: METHOTREXATE SODIUM
     Indication: RHEUMATOID ARTHRITIS
     Route: 065
  8. SULFASALAZINE. [Suspect]
     Active Substance: SULFASALAZINE
     Indication: RHEUMATOID ARTHRITIS
     Route: 065
  9. GOLD [Concomitant]
     Active Substance: GOLD
  10. PLAQUENIL [Suspect]
     Active Substance: HYDROXYCHLOROQUINE SULFATE
     Indication: RHEUMATOID ARTHRITIS
     Route: 065

REACTIONS (10)
  - Hip arthroplasty [Unknown]
  - Post procedural infection [Recovered/Resolved]
  - Drug ineffective [Unknown]
  - Drug effect decreased [Unknown]
  - Infection [Recovered/Resolved]
  - Osteonecrosis [Recovered/Resolved]
  - Lower limb fracture [Recovered/Resolved]
  - Arthropathy [Recovered/Resolved]
  - Bone disorder [Recovered/Resolved]
  - Arthritis [Recovered/Resolved]
